FAERS Safety Report 8158186-1 (Version None)
Quarter: 2012Q1

REPORT INFORMATION
  Report Type: 
  Country: None (occurrence: None)
  Receive Date: 20120222
  Receipt Date: 20120209
  Transmission Date: 20120608
  Serious: Yes (Congenital Anomaly)
  Sender: FDA-Public Use
  Company Number: DE-MYLANLABS-2012S1002922

PATIENT

DRUGS (2)
  1. FOLIC ACID [Concomitant]
     Route: 064
     Dates: start: 20110620
  2. VENLAFAXINE [Suspect]
     Dosage: 150 [MG/D ]/ SINCE MAY 2011
     Route: 064

REACTIONS (4)
  - CLEFT LIP AND PALATE [None]
  - MATERNAL EXPOSURE DURING PREGNANCY [None]
  - TRISOMY 21 [None]
  - ATRIOVENTRICULAR SEPTAL DEFECT [None]
